FAERS Safety Report 9558443 (Version 2)
Quarter: 2013Q3

REPORT INFORMATION
  Report Type: Spontaneous
  Country: US (occurrence: US)
  Receive Date: 20130926
  Receipt Date: 20130926
  Transmission Date: 20140515
  Serious: No
  Sender: FDA-Public Use
  Company Number: US-BIOGENIDEC-2013BI043393

PATIENT
  Age: 65 Year
  Sex: Female

DRUGS (4)
  1. TECFIDERA [Suspect]
     Indication: PRODUCT USED FOR UNKNOWN INDICATION
     Route: 048
     Dates: start: 20130423
  2. LEVETIRACETAM [Concomitant]
  3. TYLENOL [Concomitant]
  4. BENADRYL [Concomitant]

REACTIONS (3)
  - Flushing [Unknown]
  - Rash [Unknown]
  - Abdominal discomfort [Unknown]
